FAERS Safety Report 9780135 (Version 1)
Quarter: 2013Q4

REPORT INFORMATION
  Report Type: Spontaneous
  Country: US (occurrence: US)
  Receive Date: 20131223
  Receipt Date: 20131223
  Transmission Date: 20140711
  Serious: Yes (Disabling)
  Sender: FDA-Public Use
  Company Number: US-GE HEALTHCARE MEDICAL DIAGNOSTICS-OSCN-PR-1311S-0103

PATIENT
  Age: 76 Year
  Sex: Male
  Weight: 88 kg

DRUGS (12)
  1. OMNISCAN [Suspect]
     Indication: PRODUCT USED FOR UNKNOWN INDICATION
     Route: 042
     Dates: start: 19890111, end: 19890111
  2. OMNISCAN [Suspect]
     Indication: NECK INJURY
     Route: 042
     Dates: start: 19990916, end: 19990916
  3. MAGNEVIST [Suspect]
     Indication: PRODUCT USED FOR UNKNOWN INDICATION
     Route: 042
     Dates: start: 19890111, end: 19890111
  4. MAGNEVIST [Suspect]
     Route: 042
     Dates: start: 19890112, end: 19890112
  5. MAGNEVIST [Suspect]
     Route: 042
     Dates: start: 19990916, end: 19990916
  6. MAGNEVIST [Suspect]
     Route: 042
     Dates: start: 19990917, end: 19990917
  7. PREDNISONE [Concomitant]
  8. PLAVIX [Concomitant]
  9. METOPROLOL [Concomitant]
  10. AMLODIPINE [Concomitant]
  11. ASPIRIN [Concomitant]
  12. CALCIUM CARBONATE [Concomitant]

REACTIONS (1)
  - Nephrogenic systemic fibrosis [Not Recovered/Not Resolved]
